FAERS Safety Report 19758724 (Version 1)
Quarter: 2021Q3

REPORT INFORMATION
  Report Type: Spontaneous
  Country: US (occurrence: US)
  Receive Date: 20210829
  Receipt Date: 20210829
  Transmission Date: 20211014
  Serious: No
  Sender: FDA-Public Use
  Company Number: US-GLAXOSMITHKLINE-US2021AMR175970

PATIENT
  Sex: Male
  Weight: 108 kg

DRUGS (7)
  1. COVID VACCINE (NOS) [Concomitant]
     Indication: COVID-19
     Dosage: UNK FIRST DOSE
     Dates: start: 20210312
  2. GLIPIZIDE. [Concomitant]
     Active Substance: GLIPIZIDE
     Indication: DIABETES MELLITUS
     Dosage: 5 MG, BID
     Route: 048
  3. CLOTRIMAZOLE. [Suspect]
     Active Substance: CLOTRIMAZOLE
     Indication: RASH
     Dosage: UNK
  4. TRIAMCINOLONE ACETONIDE. [Suspect]
     Active Substance: TRIAMCINOLONE ACETONIDE
     Indication: RASH
     Dosage: UNK
  5. COVID VACCINE (NOS) [Concomitant]
     Dosage: UNK SECOND DOSE
     Dates: start: 20210402
  6. BACTROBAN [Suspect]
     Active Substance: MUPIROCIN\MUPIROCIN CALCIUM
     Indication: RASH
     Dosage: UNK
  7. AUGMENTIN [Suspect]
     Active Substance: AMOXICILLIN\CLAVULANATE POTASSIUM
     Indication: RASH
     Dosage: UNK

REACTIONS (1)
  - Drug ineffective [Unknown]
